FAERS Safety Report 11466247 (Version 2)
Quarter: 2015Q4

REPORT INFORMATION
  Report Type: Spontaneous
  Country: US (occurrence: US)
  Receive Date: 20150907
  Receipt Date: 20151007
  Transmission Date: 20160304
  Serious: No
  Sender: FDA-Public Use
  Company Number: US-TAKEDA-2015TUS011720

PATIENT
  Age: 56 Year
  Sex: Female
  Weight: 89.25 kg

DRUGS (4)
  1. AMBIEN [Concomitant]
     Active Substance: ZOLPIDEM TARTRATE
     Indication: INSOMNIA
     Dosage: UNK, QD
  2. XANAX [Concomitant]
     Active Substance: ALPRAZOLAM
     Dosage: UNK, QD
  3. BRINTELLIX [Suspect]
     Active Substance: VORTIOXETINE HYDROBROMIDE
     Indication: MAJOR DEPRESSION
     Dosage: 5 MG, QD
     Route: 048
     Dates: start: 20150811, end: 20150825
  4. LEXAPRO [Concomitant]
     Active Substance: ESCITALOPRAM OXALATE
     Indication: MAJOR DEPRESSION
     Dosage: UNK, QD
     Dates: end: 20150818

REACTIONS (3)
  - Stomatitis [Recovering/Resolving]
  - Lip swelling [Recovered/Resolved]
  - Tachyphrenia [Unknown]

NARRATIVE: CASE EVENT DATE: 201508
